FAERS Safety Report 24643654 (Version 2)
Quarter: 2025Q3

REPORT INFORMATION
  Report Type: Spontaneous
  Country: US (occurrence: US)
  Receive Date: 20241120
  Receipt Date: 20250804
  Transmission Date: 20251020
  Serious: No
  Sender: SANOFI AVENTIS
  Company Number: US-SA-2024SA336662

PATIENT
  Age: 37 Year
  Sex: Female
  Weight: 81.82 kg

DRUGS (26)
  1. DUPIXENT [Suspect]
     Active Substance: DUPILUMAB
     Indication: Dermatitis atopic
     Dosage: 300 MG, QOW
     Route: 058
     Dates: start: 20241001
  2. DUPIXENT [Suspect]
     Active Substance: DUPILUMAB
     Indication: Asthma
  3. DUPIXENT [Suspect]
     Active Substance: DUPILUMAB
     Indication: Gastrooesophageal reflux disease
  4. DUPIXENT [Suspect]
     Active Substance: DUPILUMAB
     Indication: Obstructive sleep apnoea syndrome
  5. DUPIXENT [Suspect]
     Active Substance: DUPILUMAB
     Indication: Dyspnoea
  6. DUPIXENT [Suspect]
     Active Substance: DUPILUMAB
     Indication: Psychophysiologic insomnia
  7. DUPIXENT [Suspect]
     Active Substance: DUPILUMAB
     Indication: Nicotine dependence
  8. DUPIXENT [Suspect]
     Active Substance: DUPILUMAB
     Indication: Pulmonary mass
  9. DUPIXENT [Suspect]
     Active Substance: DUPILUMAB
     Indication: Essential hypertension
  10. DUPIXENT [Suspect]
     Active Substance: DUPILUMAB
     Indication: Osteoarthritis
  11. ALBUTEROL SULFATE [Concomitant]
     Active Substance: ALBUTEROL SULFATE
  12. BUSPIRONE HCL [Concomitant]
     Active Substance: BUSPIRONE HYDROCHLORIDE
  13. CLOBETASOL PROPIONATE [Concomitant]
     Active Substance: CLOBETASOL PROPIONATE
  14. DESVENLAFAXINE SUCCINATE [Concomitant]
     Active Substance: DESVENLAFAXINE SUCCINATE
  15. FLUTICASONE PROPIONATE [Concomitant]
     Active Substance: FLUTICASONE PROPIONATE
  16. HYDROXYZINE HYDROCHLORIDE [Concomitant]
     Active Substance: HYDROXYZINE HYDROCHLORIDE
  17. MOUNJARO [Concomitant]
     Active Substance: TIRZEPATIDE
  18. MUPIROCIN [Concomitant]
     Active Substance: MUPIROCIN
  19. PHENTERMINE HYDROCHLORIDE [Concomitant]
     Active Substance: PHENTERMINE HYDROCHLORIDE
  20. ROSUVASTATIN CALCIUM [Concomitant]
     Active Substance: ROSUVASTATIN CALCIUM
  21. SPIRONOLACTONE [Concomitant]
     Active Substance: SPIRONOLACTONE
  22. WELLBUTRIN XL [Concomitant]
     Active Substance: BUPROPION HYDROCHLORIDE
  23. PREDNISONE [Concomitant]
     Active Substance: PREDNISONE
  24. TACROLIMUS [Concomitant]
     Active Substance: TACROLIMUS
  25. DEXAMETHASONE [Concomitant]
     Active Substance: DEXAMETHASONE
  26. RINVOQ [Concomitant]
     Active Substance: UPADACITINIB

REACTIONS (9)
  - Dry skin [Not Recovered/Not Resolved]
  - Skin fissures [Not Recovered/Not Resolved]
  - Sleep disorder due to a general medical condition [Not Recovered/Not Resolved]
  - Skin haemorrhage [Not Recovered/Not Resolved]
  - Skin exfoliation [Not Recovered/Not Resolved]
  - Pruritus [Not Recovered/Not Resolved]
  - Product use in unapproved indication [Unknown]
  - Drug hypersensitivity [Unknown]
  - Dermatitis atopic [Unknown]

NARRATIVE: CASE EVENT DATE: 20240101
